FAERS Safety Report 5226882-1 (Version None)
Quarter: 2007Q1

REPORT INFORMATION
  Report Type: 
  Country: None (occurrence: None)
  Receive Date: 20070202
  Receipt Date: 20070125
  Transmission Date: 20070707
  Serious: Yes (Life-Threatening, Hospitalization)
  Sender: FDA-Public Use
  Company Number: LU-JNJFOC-20070107372

PATIENT
  Age: 43 Year
  Sex: Male

DRUGS (3)
  1. RISPERDAL [Suspect]
     Indication: SCHIZOPHRENIA
     Route: 048
  2. HALDOL [Concomitant]
  3. BENZODIAZEPINE [Concomitant]

REACTIONS (1)
  - ILEUS PARALYTIC [None]
